FAERS Safety Report 20161438 (Version 1)
Quarter: 2021Q4

REPORT INFORMATION
  Report Type: Spontaneous
  Country: US (occurrence: None)
  Receive Date: 20211207
  Receipt Date: 20211207
  Transmission Date: 20220303
  Serious: Yes (Disabling)
  Sender: FDA-Public Use
  Company Number: None

PATIENT
  Age: 67 Year
  Sex: Female
  Weight: 91.35 kg

DRUGS (4)
  1. REPATHA [Suspect]
     Active Substance: EVOLOCUMAB
     Indication: Hypercholesterolaemia
     Dosage: OTHER QUANTITY : 1 INJECTION(S);?OTHER FREQUENCY : EVERY TWO WEEKS;?OTHER ROUTE : INJECTED INTO THIG
     Dates: start: 20211103, end: 20211201
  2. ATENOLOL [Concomitant]
     Active Substance: ATENOLOL
  3. HYDROCHLOROTHIAZIDE [Concomitant]
     Active Substance: HYDROCHLOROTHIAZIDE
  4. ALEVE [Concomitant]
     Active Substance: NAPROXEN SODIUM

REACTIONS (16)
  - Oropharyngeal pain [None]
  - Sinus congestion [None]
  - Rhinorrhoea [None]
  - Asthenia [None]
  - Dyspnoea exertional [None]
  - Tremor [None]
  - Nervousness [None]
  - Burning sensation [None]
  - Bone pain [None]
  - Arthralgia [None]
  - Therapy cessation [None]
  - Gait disturbance [None]
  - Insomnia [None]
  - Joint swelling [None]
  - Feeling abnormal [None]
  - Crying [None]

NARRATIVE: CASE EVENT DATE: 20211109
